FAERS Safety Report 7458070-2 (Version None)
Quarter: 2011Q2

REPORT INFORMATION
  Report Type: 
  Country: None (occurrence: None)
  Receive Date: 20110503
  Receipt Date: 20110503
  Transmission Date: 20111010
  Serious: Yes (Hospitalization)
  Sender: FDA-Public Use
  Company Number: None

PATIENT
  Age: 63 Year
  Sex: Female
  Weight: 51.7101 kg

DRUGS (1)
  1. RAD001 ( EVEROLIMUS) [Suspect]
     Dosage: 7.5 MG

REACTIONS (1)
  - HYPERVISCOSITY SYNDROME [None]
